FAERS Safety Report 26061337 (Version 2)
Quarter: 2025Q4

REPORT INFORMATION
  Report Type: Spontaneous
  Country: US (occurrence: US)
  Receive Date: 20251118
  Receipt Date: 20251209
  Transmission Date: 20260119
  Serious: No
  Sender: BIOMARIN
  Company Number: US-BIOMARINAP-US-2025-170106

PATIENT
  Age: 6 Month
  Sex: Male

DRUGS (2)
  1. VOXZOGO [Suspect]
     Active Substance: VOSORITIDE
     Indication: Osteochondrodysplasia
     Dosage: 0.2 MILLIGRAM, QD
     Dates: start: 20241101
  2. OXYGEN [Concomitant]
     Active Substance: OXYGEN
     Indication: Product used for unknown indication

REACTIONS (1)
  - Oxygen saturation decreased [Not Recovered/Not Resolved]

NARRATIVE: CASE EVENT DATE: 20250401
